FAERS Safety Report 4514174-5 (Version None)
Quarter: 2004Q4

REPORT INFORMATION
  Report Type: 
  Country: None (occurrence: None)
  Receive Date: 20041129
  Receipt Date: 20041112
  Transmission Date: 20050328
  Serious: Yes (Other)
  Sender: FDA-Public Use
  Company Number: TRP_0023_2004

PATIENT
  Age: 52 Year
  Sex: Male
  Weight: 58.9676 kg

DRUGS (6)
  1. RIBASPHERE [Suspect]
     Indication: HEPATITIS C
     Dosage: 8 TAB QDAY PO
     Route: 048
     Dates: start: 20040601, end: 20040903
  2. INTRON/PEGINTERFERON-ALFA-2B/SCHERING-PLOUGH [Suspect]
     Indication: HEPATITIS C
     Dosage: DF SC
     Route: 058
     Dates: end: 20041029
  3. REBETOL [Suspect]
     Indication: HEPATITIS C
     Dosage: DF PO
     Route: 048
     Dates: start: 20040910, end: 20041020
  4. REBETOL [Suspect]
     Indication: HEPATITIS C
     Dosage: DF PO
     Route: 048
     Dates: end: 20040601
  5. ZOLOFT [Concomitant]
  6. ZETIA [Concomitant]

REACTIONS (4)
  - DRUG HYPERSENSITIVITY [None]
  - ORAL PAIN [None]
  - PHARMACEUTICAL PRODUCT COMPLAINT [None]
  - WEIGHT DECREASED [None]
